FAERS Safety Report 19355588 (Version 3)
Quarter: 2021Q3

REPORT INFORMATION
  Report Type: Spontaneous
  Country: US (occurrence: US)
  Receive Date: 20210601
  Receipt Date: 20210714
  Transmission Date: 20211014
  Serious: Yes (Other)
  Sender: FDA-Public Use
  Company Number: US-DRREDDYS-USA/USA/21/0136034

PATIENT
  Age: 38 Year
  Sex: Female

DRUGS (3)
  1. TRI?SPRINTEC [Concomitant]
     Active Substance: ETHINYL ESTRADIOL\NORGESTIMATE
     Indication: PRODUCT USED FOR UNKNOWN INDICATION
  2. ZENATANE [Suspect]
     Active Substance: ISOTRETINOIN
     Indication: PRODUCT USED FOR UNKNOWN INDICATION
     Dosage: RMA ISSUE DATE: 7/7/2015 2:39:17 PM , 8/9/2015 6:18:54 PM , 9/18/2015 1:36:04 PM, 10/5/2016 4:23:22
  3. ZENATANE [Suspect]
     Active Substance: ISOTRETINOIN
     Dosage: RMA ISSUE DATE: 10/1/2020 3:41:33 PM, 11/5/2020 9:37:42 AM, 12/8/2020 3:58:07 PM,1/13/2021 9:37:37 A
     Dates: start: 20200110, end: 20210407

REACTIONS (4)
  - Abortion spontaneous [Unknown]
  - Product dose omission issue [Unknown]
  - Exposure during pregnancy [Unknown]
  - Adverse drug reaction [Unknown]
